FAERS Safety Report 20832350 (Version 1)
Quarter: 2022Q2

REPORT INFORMATION
  Report Type: Spontaneous
  Country: US (occurrence: US)
  Receive Date: 20220516
  Receipt Date: 20220516
  Transmission Date: 20220721
  Serious: Yes (Other)
  Sender: FDA-Public Use
  Company Number: US-BRISTOL-MYERS SQUIBB COMPANY-2022-033629

PATIENT
  Age: 65 Year
  Sex: Male
  Weight: 85.73 kg

DRUGS (10)
  1. SPRYCEL [Suspect]
     Active Substance: DASATINIB
     Indication: Chronic myeloid leukaemia
     Dosage: DOSE : 100 MG;     FREQ : ONCE A DAY
     Route: 048
     Dates: start: 20211208, end: 20220318
  2. ROSUVASTATIN [Concomitant]
     Active Substance: ROSUVASTATIN
  3. NORVASC [Concomitant]
     Active Substance: AMLODIPINE BESYLATE
  4. GLIPIZIDE [Concomitant]
     Active Substance: GLIPIZIDE
  5. PLAVIX [Concomitant]
     Active Substance: CLOPIDOGREL BISULFATE
  6. TERAZOSIN [Concomitant]
     Active Substance: TERAZOSIN HYDROCHLORIDE
  7. ISOSORBIDE [Concomitant]
     Active Substance: ISOSORBIDE
  8. METOPROLOL [Concomitant]
     Active Substance: METOPROLOL
  9. METFORMIN [Concomitant]
     Active Substance: METFORMIN HYDROCHLORIDE
  10. ASPIRIN [Concomitant]
     Active Substance: ASPIRIN

REACTIONS (2)
  - Myocardial infarction [Unknown]
  - Angina pectoris [Unknown]

NARRATIVE: CASE EVENT DATE: 20211208
